FAERS Safety Report 11177526 (Version 1)
Quarter: 2015Q2

REPORT INFORMATION
  Report Type: Spontaneous
  Country: MY (occurrence: MY)
  Receive Date: 20150610
  Receipt Date: 20150610
  Transmission Date: 20150821
  Serious: Yes (Other)
  Sender: FDA-Public Use
  Company Number: MY-PFIZER INC-2015191817

PATIENT
  Age: 19 Year
  Sex: Female

DRUGS (7)
  1. PANTOPRAZOLE [Concomitant]
     Active Substance: PANTOPRAZOLE SODIUM
  2. CEFOPERAZONE [Concomitant]
     Active Substance: CEFOPERAZONE
  3. SALBUTAMOL [Concomitant]
     Active Substance: ALBUTEROL
  4. METRONIDAZOLE. [Concomitant]
     Active Substance: METRONIDAZOLE
  5. PETHIDINE [Concomitant]
     Active Substance: MEPERIDINE
  6. CELEBREX [Suspect]
     Active Substance: CELECOXIB
     Dosage: 400 MG, SINGLE
     Route: 048
     Dates: start: 20140212, end: 20140212
  7. METOCLOPRAMIDE. [Concomitant]
     Active Substance: METOCLOPRAMIDE

REACTIONS (3)
  - Face oedema [Recovered/Resolved]
  - Localised oedema [Recovered/Resolved]
  - Vomiting [Recovered/Resolved]

NARRATIVE: CASE EVENT DATE: 20140212
